FAERS Safety Report 19211707 (Version 1)
Quarter: 2021Q2

REPORT INFORMATION
  Report Type: Spontaneous
  Country: US (occurrence: US)
  Receive Date: 20210504
  Receipt Date: 20210504
  Transmission Date: 20210717
  Serious: No
  Sender: FDA-Public Use
  Company Number: US-GW PHARMA-202104USGW02078

PATIENT

DRUGS (2)
  1. EPIDIOLEX [Suspect]
     Active Substance: CANNABIDIOL
     Indication: TUBEROUS SCLEROSIS COMPLEX
     Dosage: UNKNOWN DOSE
     Route: 048
     Dates: start: 20210223, end: 2021
  2. EPIDIOLEX [Suspect]
     Active Substance: CANNABIDIOL
     Dosage: 550 MILLIGRAM, BID
     Route: 048
     Dates: start: 2021

REACTIONS (6)
  - Somnolence [Unknown]
  - Hypophagia [Unknown]
  - Diarrhoea [Unknown]
  - Weight decreased [Unknown]
  - Seizure [Unknown]
  - Atonic seizures [Unknown]

NARRATIVE: CASE EVENT DATE: 2021
